FAERS Safety Report 13249785 (Version 1)
Quarter: 2017Q1

REPORT INFORMATION
  Report Type: Spontaneous
  Country: US (occurrence: US)
  Receive Date: 20170218
  Receipt Date: 20170218
  Transmission Date: 20170428
  Serious: No
  Sender: FDA-Public Use
  Company Number: US-ALLERGAN-1674545US

PATIENT
  Age: 77 Year
  Sex: Female
  Weight: 55.78 kg

DRUGS (1)
  1. RESTASIS [Suspect]
     Active Substance: CYCLOSPORINE
     Indication: DRY EYE
     Dosage: 1 GTT, UNK
     Route: 047
     Dates: start: 201610

REACTIONS (7)
  - Wrong technique in product usage process [Unknown]
  - Foreign body sensation in eyes [Not Recovered/Not Resolved]
  - Flushing [Recovered/Resolved]
  - Erythema [Recovering/Resolving]
  - Product quality issue [Unknown]
  - Accidental exposure to product [Unknown]
  - Eye pruritus [Not Recovered/Not Resolved]

NARRATIVE: CASE EVENT DATE: 201610
